FAERS Safety Report 4388375-3 (Version None)
Quarter: 2004Q3

REPORT INFORMATION
  Report Type: 
  Country: None (occurrence: None)
  Receive Date: 20040701
  Receipt Date: 20040527
  Transmission Date: 20050211
  Serious: Yes (Hospitalization, Other)
  Sender: FDA-Public Use
  Company Number: FR-BRISTOL-MYERS SQUIBB COMPANY-12599213

PATIENT
  Age: 16 Year
  Sex: Male
  Weight: 60 kg

DRUGS (8)
  1. AXEPIM INJ 2 GM [Suspect]
     Indication: BRONCHIAL INFECTION
     Route: 042
     Dates: start: 19971212, end: 19971223
  2. TARGOCID [Suspect]
     Indication: BRONCHIAL INFECTION
     Dosage: REDUCED TO 400 MG ONCE PER DAY 15-DEC-1997 THROUGH 06-JAN-1998
     Route: 042
     Dates: start: 19971212, end: 19980106
  3. PROGRAF [Concomitant]
     Dates: start: 19971016
  4. SPORANOX [Concomitant]
     Dates: start: 19971016, end: 20010520
  5. CELLCEPT [Concomitant]
     Dates: start: 19970915
  6. CORTANCYL [Concomitant]
     Dates: start: 19970915
  7. OSTRAM [Concomitant]
     Dates: start: 19971001, end: 19980401
  8. UN-ALFA [Concomitant]
     Dates: start: 19971001, end: 19980301

REACTIONS (6)
  - ACCIDENTAL OVERDOSE [None]
  - MEDICATION ERROR [None]
  - OSTEOPOROSIS [None]
  - RENAL FAILURE [None]
  - RENAL TRANSPLANT [None]
  - RENAL TUBULAR NECROSIS [None]
